FAERS Safety Report 14025612 (Version 1)
Quarter: 2017Q3

REPORT INFORMATION
  Report Type: Spontaneous
  Country: US (occurrence: US)
  Receive Date: 20170929
  Receipt Date: 20170929
  Transmission Date: 20171128
  Serious: No
  Sender: FDA-Public Use
  Company Number: US-BION-006446

PATIENT
  Sex: Female

DRUGS (1)
  1. EQUATE CAPSULE 2 MG (LOPERAMIDE HYDROCHLORIDE) [Suspect]
     Active Substance: LOPERAMIDE HYDROCHLORIDE
     Indication: PRODUCT USED FOR UNKNOWN INDICATION
     Dosage: STRENGTH 2 MG?USED FOR QUITE SOME TIME

REACTIONS (2)
  - Product size issue [Unknown]
  - Drug ineffective [Not Recovered/Not Resolved]
